FAERS Safety Report 24902262 (Version 1)
Quarter: 2025Q1

REPORT INFORMATION
  Report Type: Spontaneous
  Country: KR (occurrence: KR)
  Receive Date: 20250130
  Receipt Date: 20250130
  Transmission Date: 20250409
  Serious: Yes (Life-Threatening, Hospitalization, Other)
  Sender: BOEHRINGER INGELHEIM
  Company Number: KR-BoehringerIngelheim-2025-BI-005055

PATIENT
  Age: 70 Year
  Sex: Female

DRUGS (3)
  1. EMPAGLIFLOZIN [Suspect]
     Active Substance: EMPAGLIFLOZIN
     Indication: Diabetes mellitus
  2. METFORMIN [Concomitant]
     Active Substance: METFORMIN HYDROCHLORIDE
     Indication: Diabetes mellitus
  3. GLICLAZIDE [Concomitant]
     Active Substance: GLICLAZIDE
     Indication: Diabetes mellitus

REACTIONS (9)
  - Altered state of consciousness [Unknown]
  - Diabetic ketoacidosis [Unknown]
  - Cerebral infarction [Unknown]
  - Cerebral artery occlusion [Unknown]
  - Acetonaemia [Recovering/Resolving]
  - Pyrexia [Unknown]
  - Pneumonia [Unknown]
  - Dyspnoea [Unknown]
  - Metabolic acidosis [Unknown]
